FAERS Safety Report 13011564 (Version 1)
Quarter: 2016Q4

REPORT INFORMATION
  Report Type: Spontaneous
  Country: US (occurrence: US)
  Receive Date: 20161209
  Receipt Date: 20161209
  Transmission Date: 20170207
  Serious: Yes (Hospitalization)
  Sender: FDA-Public Use
  Company Number: US-BIOGEN-2012BI014732

PATIENT
  Age: 14 Year
  Sex: Female

DRUGS (2)
  1. AVONEX [Suspect]
     Active Substance: INTERFERON BETA-1A
     Indication: MULTIPLE SCLEROSIS
     Route: 030
     Dates: start: 20110201, end: 20120216
  2. AVONEX [Suspect]
     Active Substance: INTERFERON BETA-1A
     Route: 030
     Dates: start: 20120216, end: 201204

REACTIONS (8)
  - Ocular hyperaemia [Unknown]
  - Tremor [Recovered/Resolved]
  - Pain [Recovered/Resolved]
  - Multiple sclerosis [Unknown]
  - Adverse event [Unknown]
  - Vision blurred [Unknown]
  - Chills [Recovered/Resolved]
  - Hyperhidrosis [Recovered/Resolved]

NARRATIVE: CASE EVENT DATE: 20120216
